FAERS Safety Report 20513906 (Version 1)
Quarter: 2022Q1

REPORT INFORMATION
  Report Type: Spontaneous
  Country: US (occurrence: US)
  Receive Date: 20220224
  Receipt Date: 20220224
  Transmission Date: 20220423
  Serious: No
  Sender: FDA-Public Use
  Company Number: US-ORGANON-O2202USA001751

PATIENT
  Sex: Female

DRUGS (8)
  1. FOLLISTIM AQ [Suspect]
     Active Substance: FOLLITROPIN
     Indication: Infertility female
     Dosage: 900 INTERNATIONAL UNITS/1.8 MILLILITER 2=1, INJECT 75 TO 350 UNITS UNDER THE SKIN (SUBCUTANEOUS INJE
     Route: 058
     Dates: start: 20220208
  2. ENDOMETRIN [Concomitant]
     Active Substance: PROGESTERONE
     Dosage: UNK
  3. ENOXAPARIN SODIUM [Concomitant]
     Active Substance: ENOXAPARIN SODIUM
     Dosage: UNK
  4. FOLLISTIM AQ [Concomitant]
     Active Substance: FOLLITROPIN
     Dosage: UNK
  5. GANIRELIX ACETATE [Concomitant]
     Active Substance: GANIRELIX ACETATE
     Dosage: UNK
  6. LUPRON DEPOT [Concomitant]
     Active Substance: LEUPROLIDE ACETATE
     Dosage: UNK
  7. VITAMINS [Concomitant]
     Active Substance: VITAMINS
     Dosage: UNK
  8. OVIDRELLE [Concomitant]
     Dosage: UNK

REACTIONS (1)
  - Dyspnoea [Unknown]
